FAERS Safety Report 7146149-4 (Version None)
Quarter: 2010Q4

REPORT INFORMATION
  Report Type: 
  Country: None (occurrence: None)
  Receive Date: 20101208
  Receipt Date: 20101129
  Transmission Date: 20110411
  Serious: Yes (Hospitalization)
  Sender: FDA-Public Use
  Company Number: IT-TEVA-256262ISR

PATIENT
  Age: 55 Year
  Sex: Female

DRUGS (12)
  1. CISPLATIN [Suspect]
     Indication: NON-SMALL CELL LUNG CANCER
     Route: 042
     Dates: start: 20100803, end: 20100803
  2. CISPLATIN [Suspect]
     Route: 042
  3. PEMETREXED [Suspect]
     Indication: NON-SMALL CELL LUNG CANCER
     Route: 042
     Dates: start: 20100628, end: 20100628
  4. PEMETREXED [Suspect]
     Dates: start: 20100803, end: 20100803
  5. GRANISETRON HYDROCHLORIDE [Concomitant]
     Dates: start: 20100628, end: 20100630
  6. DEXAMETHASONE [Concomitant]
     Dates: start: 20100628, end: 20100628
  7. APREPITANT [Concomitant]
     Dates: start: 20100628, end: 20100628
  8. LEVOTHYROXINE SODIUM [Concomitant]
  9. PANTOPRAZOLE [Concomitant]
     Dates: start: 20100427
  10. FOLIC ACID [Concomitant]
     Dates: start: 20100621
  11. CYANOCOBALAMIN [Concomitant]
     Dates: start: 20100621, end: 20100621
  12. METOCLOPRAMIDE [Concomitant]
     Dates: start: 20100629, end: 20100630

REACTIONS (1)
  - CARDIAC FAILURE [None]
